FAERS Safety Report 6603909-3 (Version None)
Quarter: 2010Q1

REPORT INFORMATION
  Report Type: 
  Country: None (occurrence: None)
  Receive Date: 20100226
  Receipt Date: 20090307
  Transmission Date: 20100710
  Serious: No
  Sender: FDA-Public Use
  Company Number: A0773085A

PATIENT
  Sex: Female

DRUGS (2)
  1. LAMICTAL CD [Suspect]
     Route: 048
  2. BONIVA [Suspect]
     Indication: OSTEOPOROSIS
     Route: 048

REACTIONS (2)
  - MOOD SWINGS [None]
  - OSTEOPOROSIS [None]
